FAERS Safety Report 5076086-0 (Version None)
Quarter: 2006Q3

REPORT INFORMATION
  Report Type: 
  Country: None (occurrence: None)
  Receive Date: 20060809
  Receipt Date: 20051213
  Transmission Date: 20061208
  Serious: Yes (Hospitalization)
  Sender: FDA-Public Use
  Company Number: US-AMGEN-US161326

PATIENT
  Age: 79 Year
  Sex: Female

DRUGS (4)
  1. PROCRIT [Suspect]
     Indication: RENAL FAILURE CHRONIC
     Dates: start: 20040201
  2. DIOVAN [Concomitant]
  3. NORVASC [Concomitant]
  4. GLUCOTROL [Concomitant]

REACTIONS (1)
  - HYPERKALAEMIA [None]
